FAERS Safety Report 20897091 (Version 1)
Quarter: 2022Q2

REPORT INFORMATION
  Report Type: Spontaneous
  Country: AU (occurrence: AU)
  Receive Date: 20220531
  Receipt Date: 20220531
  Transmission Date: 20220721
  Serious: Yes (Hospitalization)
  Sender: FDA-Public Use
  Company Number: AU-BAYER-2022A073969

PATIENT
  Age: 68 Year
  Sex: Male
  Weight: 70 kg

DRUGS (7)
  1. XARELTO [Interacting]
     Active Substance: RIVAROXABAN
     Indication: Atrial fibrillation
     Route: 048
  2. BERBERINE [Interacting]
     Active Substance: BERBERINE
     Indication: Product used for unknown indication
     Dosage: 500 MG, BID
  3. BISOPROLOL [Concomitant]
     Active Substance: BISOPROLOL
     Dosage: 10 MG
  4. SPIRONOLACTONE [Concomitant]
     Active Substance: SPIRONOLACTONE
     Dosage: 25 MG
  5. METFORMIN SR [Concomitant]
     Dosage: 500 MG, QD
  6. SACUBITRIL [Concomitant]
     Active Substance: SACUBITRIL
     Dosage: 24 MG, BID
  7. VALSARTAN [Concomitant]
     Active Substance: VALSARTAN
     Dosage: 26 MG, BID

REACTIONS (4)
  - Liver injury [Recovered/Resolved]
  - Inhibitory drug interaction [Unknown]
  - Drug level above therapeutic [Unknown]
  - International normalised ratio increased [Unknown]
